FAERS Safety Report 15981238 (Version 1)
Quarter: 2019Q1

REPORT INFORMATION
  Report Type: Spontaneous
  Country: AU (occurrence: AU)
  Receive Date: 20190218
  Receipt Date: 20190218
  Transmission Date: 20190418
  Serious: Yes (Disabling)
  Sender: FDA-Public Use
  Company Number: None

PATIENT
  Age: 4 Year
  Sex: Female
  Weight: 28 kg

DRUGS (3)
  1. VENTOLIN [Concomitant]
     Active Substance: ALBUTEROL SULFATE
  2. FLIXODINE [Concomitant]
  3. SINGULAIR [Suspect]
     Active Substance: MONTELUKAST SODIUM
     Indication: ASTHMA
     Dosage: ?          QUANTITY:1 TABLET(S);?
     Route: 048
     Dates: start: 20130108, end: 20190101

REACTIONS (8)
  - Dizziness [None]
  - Rash [None]
  - Feeling abnormal [None]
  - Intentional self-injury [None]
  - Learning disorder [None]
  - Upper respiratory tract infection [None]
  - Anxiety [None]
  - Aggression [None]

NARRATIVE: CASE EVENT DATE: 20140108
